FAERS Safety Report 6976745-6 (Version None)
Quarter: 2010Q3

REPORT INFORMATION
  Report Type: 
  Country: None (occurrence: None)
  Receive Date: 20100910
  Receipt Date: 20100902
  Transmission Date: 20110219
  Serious: Yes (Other)
  Sender: FDA-Public Use
  Company Number: A0880365A

PATIENT
  Sex: Female

DRUGS (3)
  1. NIQUITIN 14MG [Suspect]
     Indication: SMOKING CESSATION THERAPY
     Dosage: 14MG PER DAY
     Route: 050
     Dates: start: 20100614
  2. NIQUITIN 7MG [Suspect]
     Indication: SMOKING CESSATION THERAPY
     Dosage: 7MG PER DAY
     Route: 062
  3. OMEPRAZOLE [Concomitant]
     Dates: start: 20060803

REACTIONS (5)
  - APPLICATION SITE REACTION [None]
  - DRUG ADMINISTRATION ERROR [None]
  - HALLUCINATION [None]
  - INTENTIONAL DRUG MISUSE [None]
  - NICOTINE DEPENDENCE [None]
